FAERS Safety Report 8188132 (Version 2)
Quarter: 2012Q4

REPORT INFORMATION
  Report Type: 
  Country: US (occurrence: US)
  Receive Date: 20111018
  Receipt Date: 20120831
  Transmission Date: 20130627
  Serious: No
  Sender: FDA-Public Use
  Company Number: US-ASTRAZENECA-2011SE43981

PATIENT
  Age: 58 Year
  Sex: Male

DRUGS (2)
  1. SYMBICORT PMDI [Suspect]
     Indication: CHRONIC OBSTRUCTIVE PULMONARY DISEASE
     Dosage: 2 PUFFS BID
     Route: 055
  2. ALBUTEROL AND VENTOLIN [Concomitant]

REACTIONS (2)
  - Dyspnoea [Unknown]
  - Disability [Unknown]
